FAERS Safety Report 8566868 (Version 4)
Quarter: 2012Q4

REPORT INFORMATION
  Report Type: 
  Country: US (occurrence: US)
  Receive Date: 20120517
  Receipt Date: 20121116
  Transmission Date: 20130627
  Serious: Yes (Death, Hospitalization)
  Sender: FDA-Public Use
  Company Number: US-ACTELION-A-NJ2012-65849

PATIENT
  Age: 37 Year
  Sex: Male

DRUGS (2)
  1. VENTAVIS [Suspect]
     Indication: PULMONARY HYPERTENSION
     Dosage: 6 times daily
     Route: 055
     Dates: start: 201205, end: 20121110
  2. ADCIRCA [Concomitant]

REACTIONS (3)
  - Death [Fatal]
  - Pulmonary fibrosis [Recovering/Resolving]
  - Pulmonary hypertension [Recovering/Resolving]
